FAERS Safety Report 18238313 (Version 2)
Quarter: 2020Q4

REPORT INFORMATION
  Report Type: Spontaneous
  Country: US (occurrence: US)
  Receive Date: 20200907
  Receipt Date: 20201006
  Transmission Date: 20210113
  Serious: No
  Sender: FDA-Public Use
  Company Number: US-PFIZER INC-2020343566

PATIENT
  Age: 73 Year
  Sex: Female

DRUGS (3)
  1. PREDNISONE. [Concomitant]
     Active Substance: PREDNISONE
     Indication: BLOOD CHOLESTEROL INCREASED
     Dosage: UNK
  2. LOVASTATIN. [Concomitant]
     Active Substance: LOVASTATIN
     Indication: BLOOD CHOLESTEROL INCREASED
     Dosage: UNK
  3. XELJANZ XR [Suspect]
     Active Substance: TOFACITINIB CITRATE
     Indication: RHEUMATOID ARTHRITIS
     Dosage: 11 MG, ONCE DAILY
     Route: 048
     Dates: start: 2018

REACTIONS (7)
  - Rhinitis allergic [Unknown]
  - Peripheral swelling [Recovered/Resolved]
  - Pharyngeal mass [Unknown]
  - Therapeutic response unexpected [Unknown]
  - Cough [Unknown]
  - Musculoskeletal disorder [Recovered/Resolved]
  - Product use issue [Unknown]
